FAERS Safety Report 12093186 (Version 1)
Quarter: 2016Q1

REPORT INFORMATION
  Report Type: Spontaneous
  Country: US (occurrence: US)
  Receive Date: 20160219
  Receipt Date: 20160219
  Transmission Date: 20160526
  Serious: Yes (Other)
  Sender: FDA-Public Use
  Company Number: US-TEVA-623558USA

PATIENT
  Sex: Female
  Weight: 65.83 kg

DRUGS (1)
  1. AMPHETAMINE W/DEXTROAMPHETAMINE [Suspect]
     Active Substance: AMPHETAMINE SULFATE\DEXTROAMPHETAMINE
     Route: 065

REACTIONS (7)
  - Oropharyngeal pain [Unknown]
  - Paraesthesia [Unknown]
  - Heart rate increased [Unknown]
  - Pharyngeal oedema [Unknown]
  - Heart rate irregular [Unknown]
  - Ear congestion [Unknown]
  - Peripheral swelling [Unknown]
